FAERS Safety Report 10142832 (Version 1)
Quarter: 2014Q2

REPORT INFORMATION
  Report Type: Spontaneous
  Country: US (occurrence: None)
  Receive Date: 20140428
  Receipt Date: 20140428
  Transmission Date: 20141212
  Serious: Yes (Other)
  Sender: FDA-Public Use
  Company Number: None

PATIENT
  Age: 44 Year
  Sex: Female
  Weight: 85.73 kg

DRUGS (2)
  1. PAZOPANIB [Suspect]
     Indication: LEIOMYOSARCOMA
     Route: 048
     Dates: start: 20140409
  2. GSK1120212 [Suspect]
     Indication: LEIOMYOSARCOMA
     Route: 048
     Dates: start: 20140409

REACTIONS (4)
  - Headache [None]
  - Nausea [None]
  - Vomiting [None]
  - Convulsion [None]
